FAERS Safety Report 24021694 (Version 1)
Quarter: 2024Q2

REPORT INFORMATION
  Report Type: Spontaneous
  Country: GB (occurrence: GB)
  Receive Date: 20240627
  Receipt Date: 20240627
  Transmission Date: 20240716
  Serious: No
  Sender: FDA-Public Use
  Company Number: GB-ROCHE-3521917

PATIENT

DRUGS (1)
  1. VABYSMO [Suspect]
     Active Substance: FARICIMAB\FARICIMAB-SVOA
     Indication: Product used for unknown indication
     Route: 065

REACTIONS (7)
  - Eye irritation [Unknown]
  - Pain [Unknown]
  - Eye discharge [Unknown]
  - Fatigue [Unknown]
  - Lacrimation increased [Unknown]
  - Eyelids pruritus [Unknown]
  - Eyelid irritation [Unknown]
